FAERS Safety Report 14839340 (Version 21)
Quarter: 2021Q3

REPORT INFORMATION
  Report Type: Spontaneous
  Country: DE (occurrence: DE)
  Receive Date: 20180502
  Receipt Date: 20210705
  Transmission Date: 20211014
  Serious: Yes (Death, Life-Threatening, Hospitalization, Other)
  Sender: FDA-Public Use
  Company Number: DE-BAUSCH-BL-2018-012079

PATIENT
  Age: 73 Year
  Sex: Female
  Weight: 69 kg

DRUGS (67)
  1. RAMIPRIL. [Suspect]
     Active Substance: RAMIPRIL
     Dosage: 10 MG, EVERY 29 DAY
     Route: 048
     Dates: start: 20010616, end: 20010714
  2. CIPROFLOXACIN HYDROCHLORIDE. [Suspect]
     Active Substance: CIPROFLOXACIN HYDROCHLORIDE
     Indication: CHOLECYSTITIS
     Route: 048
     Dates: start: 20010710, end: 20010711
  3. PANTOZOL [Suspect]
     Active Substance: PANTOPRAZOLE SODIUM
     Dosage: 40 MG, (DOSE DECREASED FROM 80 TO 40 MG DAILY)
     Route: 048
     Dates: start: 2001, end: 20010714
  4. EUNERPAN [Suspect]
     Active Substance: MELPERONE HYDROCHLORIDE
     Route: 048
     Dates: start: 20010703
  5. DECORTIN [Suspect]
     Active Substance: PREDNISONE
     Indication: RESTLESSNESS
  6. NOVODIGAL (.BETA.?ACETYLDIGOXIN) [Suspect]
     Active Substance: .BETA.-ACETYLDIGOXIN
     Indication: CORONARY ARTERY DISEASE
     Route: 048
     Dates: start: 20010703
  7. CAPTOPRIL. [Suspect]
     Active Substance: CAPTOPRIL
     Indication: CORONARY ARTERY DISEASE
     Route: 048
     Dates: start: 20010616, end: 20010714
  8. PANTOPRAZOLE SODIUM. [Concomitant]
     Active Substance: PANTOPRAZOLE SODIUM
     Indication: PROPHYLAXIS
     Dosage: 40 MG, QD
     Route: 065
     Dates: start: 20010616, end: 20010714
  9. DIAZEPAM. [Suspect]
     Active Substance: DIAZEPAM
     Route: 048
     Dates: start: 20010616, end: 20010703
  10. PARACETAMOL [Suspect]
     Active Substance: ACETAMINOPHEN
     Indication: PAIN
     Route: 048
     Dates: start: 20010711, end: 20010711
  11. AMPHOTERICIN B. [Suspect]
     Active Substance: AMPHOTERICIN B
     Indication: ANTIFUNGAL PROPHYLAXIS
     Dosage: 200 MG, UNK DOSE FORM STATED AS PIPETTES
     Route: 048
     Dates: start: 20010703, end: 20010714
  12. AMARYL [Suspect]
     Active Substance: GLIMEPIRIDE
     Indication: DIABETES MELLITUS
     Route: 048
     Dates: start: 20010616, end: 20010703
  13. LASIX [Suspect]
     Active Substance: FUROSEMIDE
     Indication: HYPERTENSION
     Dosage: 120 MG, DOSE RANGED FROM 80 MG?120 MG DAILY
     Route: 042
     Dates: start: 20010703, end: 20010714
  14. ROCEPHIN [Suspect]
     Active Substance: CEFTRIAXONE SODIUM
     Indication: PYREXIA
     Route: 042
     Dates: start: 20010629, end: 20010703
  15. MOLSIDOMINE [Suspect]
     Active Substance: MOLSIDOMINE
     Route: 048
     Dates: start: 20010703, end: 20010714
  16. FRAGMIN [Suspect]
     Active Substance: DALTEPARIN SODIUM
     Indication: THROMBOSIS PROPHYLAXIS
     Dosage: 2500 IU (DAILY DOSE)
     Route: 058
     Dates: start: 20010703, end: 20010714
  17. VAGMYCIN [Suspect]
     Active Substance: AMPHOTERICIN B\TETRACYCLINE
     Indication: ANTIFUNGAL PROPHYLAXIS
     Route: 048
     Dates: start: 20010703, end: 20010714
  18. SODIUM PERCHLORATE [Concomitant]
     Active Substance: SODIUM PERCHLORATE
     Indication: PRODUCT USED FOR UNKNOWN INDICATION
     Route: 065
     Dates: start: 20010618, end: 20010714
  19. BISOPROLOL FUMARATE. [Concomitant]
     Active Substance: BISOPROLOL FUMARATE
     Indication: CORONARY ARTERY DISEASE
     Dosage: UNK
     Route: 065
     Dates: end: 20010714
  20. INSULIN GLARGINE [Concomitant]
     Active Substance: INSULIN GLARGINE
     Indication: PRODUCT USED FOR UNKNOWN INDICATION
     Route: 065
     Dates: end: 20010629
  21. RAMIPRIL. [Suspect]
     Active Substance: RAMIPRIL
     Indication: CORONARY ARTERY DISEASE
     Route: 048
     Dates: start: 20010616, end: 20010714
  22. LANTUS [Suspect]
     Active Substance: INSULIN GLARGINE
     Indication: DIABETES MELLITUS
     Route: 058
     Dates: start: 20010616, end: 20010629
  23. CONCOR [Suspect]
     Active Substance: BISOPROLOL FUMARATE
     Indication: CORONARY ARTERY DISEASE
     Route: 048
     Dates: start: 20010616, end: 20010714
  24. VAGMYCIN [Suspect]
     Active Substance: AMPHOTERICIN B\TETRACYCLINE
     Route: 048
     Dates: start: 20010703, end: 20010714
  25. ACETYLDIGOXIN [Suspect]
     Active Substance: .ALPHA.-ACETYLDIGOXIN
     Indication: CORONARY ARTERY DISEASE
     Route: 048
     Dates: start: 20010703
  26. CEFTRIAXONE SODIUM. [Suspect]
     Active Substance: CEFTRIAXONE SODIUM
     Indication: PYREXIA
     Route: 065
     Dates: start: 20010629, end: 20010703
  27. ISOSORBIDE MONONITRATE. [Suspect]
     Active Substance: ISOSORBIDE MONONITRATE
     Indication: CORONARY ARTERY DISEASE
     Route: 048
     Dates: start: 20010703, end: 20010714
  28. CAPTOPRIL. [Suspect]
     Active Substance: CAPTOPRIL
     Indication: CORONARY ARTERY DISEASE
     Dosage: 1MOL/ML
     Route: 048
     Dates: start: 20010616, end: 20010714
  29. CARBIMAZOLE [Suspect]
     Active Substance: CARBIMAZOLE
     Indication: HYPERTHYROIDISM
     Dosage: 30 MG, (DOSE RANGED FROM 20?30 MG DAILY)
     Route: 048
     Dates: start: 20010621, end: 20010714
  30. TRANXENE [Suspect]
     Active Substance: CLORAZEPATE DIPOTASSIUM
     Indication: RESTLESSNESS
     Route: 048
     Dates: start: 20010710, end: 20010714
  31. NORVASC [Suspect]
     Active Substance: AMLODIPINE BESYLATE
     Indication: CORONARY ARTERY DISEASE
     Route: 048
     Dates: start: 20010703, end: 20010714
  32. NORVASC [Suspect]
     Active Substance: AMLODIPINE BESYLATE
     Route: 048
     Dates: start: 20010703, end: 20010714
  33. HALOPERIDOL DECANOATE. [Concomitant]
     Active Substance: HALOPERIDOL DECANOATE
     Indication: RESTLESSNESS
     Route: 048
     Dates: start: 20010713, end: 20010714
  34. DIAZEPAM. [Suspect]
     Active Substance: DIAZEPAM
     Indication: RESTLESSNESS
     Route: 048
     Dates: start: 20010616, end: 20010703
  35. IRENAT [Suspect]
     Active Substance: SODIUM PERCHLORATE
     Indication: HYPERTHYROIDISM
     Dosage: TOTAL DAILY DOSE RANGED FROM 1376.8 MG TO 2065.2 MG
     Route: 048
     Dates: start: 20010618, end: 20010714
  36. DIGOXIN. [Suspect]
     Active Substance: DIGOXIN
     Indication: CORONARY ARTERY DISEASE
     Route: 048
     Dates: start: 20010703, end: 20010714
  37. METOCLOPRAMIDE HYDROCHLORIDE. [Suspect]
     Active Substance: METOCLOPRAMIDE HYDROCHLORIDE
     Route: 048
     Dates: start: 20010704, end: 20010712
  38. BISOPROLOL FUMARATE. [Concomitant]
     Active Substance: BISOPROLOL FUMARATE
     Route: 065
     Dates: start: 20010616
  39. POTASSIUM CHLORIDE. [Concomitant]
     Active Substance: POTASSIUM CHLORIDE
     Indication: ELECTROLYTE IMBALANCE
     Dates: start: 20010703, end: 20010714
  40. PREDNISOLONE SODIUM SUCCINATE [Suspect]
     Active Substance: PREDNISOLONE SODIUM SUCCINATE
     Indication: DYSPNOEA
     Route: 042
     Dates: start: 20010703, end: 20010703
  41. TRANXENE [Suspect]
     Active Substance: CLORAZEPATE DIPOTASSIUM
     Indication: RESTLESSNESS
     Route: 048
     Dates: start: 20010710, end: 20010714
  42. EUNERPAN [Suspect]
     Active Substance: MELPERONE HYDROCHLORIDE
     Indication: RESTLESSNESS
     Dosage: 80?105 MG DAILY
     Route: 048
     Dates: start: 20010706, end: 20010712
  43. DIGOXIN. [Suspect]
     Active Substance: DIGOXIN
     Route: 048
     Dates: start: 20010703, end: 20010714
  44. MOLSIDOMINE [Suspect]
     Active Substance: MOLSIDOMINE
     Indication: CORONARY ARTERY DISEASE
     Dosage: 16?8 MG
     Route: 048
     Dates: start: 20010703, end: 20010714
  45. METOCLOPRAMIDE HYDROCHLORIDE. [Suspect]
     Active Substance: METOCLOPRAMIDE HYDROCHLORIDE
     Indication: NAUSEA
     Route: 048
     Dates: start: 20010704, end: 20010712
  46. GLIMEPIRIDE. [Concomitant]
     Active Substance: GLIMEPIRIDE
     Indication: DIABETES MELLITUS
     Dates: start: 20010616, end: 20010703
  47. SORTIS [Suspect]
     Active Substance: ATORVASTATIN
     Indication: HYPERLIPIDAEMIA
     Route: 048
     Dates: start: 20010616, end: 20010703
  48. PLAVIX [Suspect]
     Active Substance: CLOPIDOGREL BISULFATE
     Indication: CORONARY ARTERY DISEASE
     Route: 048
     Dates: start: 20010704, end: 20010714
  49. PANTOZOL [Suspect]
     Active Substance: PANTOPRAZOLE SODIUM
     Indication: PROPHYLAXIS
     Route: 048
  50. PANTOZOL [Suspect]
     Active Substance: PANTOPRAZOLE SODIUM
     Indication: DYSPNOEA
     Dosage: (DOSE DECREASED FROM 80 TO 40 MG DAILY)
     Route: 048
     Dates: start: 20010616, end: 20010714
  51. PANTOZOL [Suspect]
     Active Substance: PANTOPRAZOLE SODIUM
     Route: 042
     Dates: start: 20010703, end: 20010703
  52. EUNERPAN [Suspect]
     Active Substance: MELPERONE HYDROCHLORIDE
     Route: 048
     Dates: start: 20010706, end: 20010712
  53. DIGOXIN. [Suspect]
     Active Substance: DIGOXIN
     Route: 048
     Dates: start: 20010703, end: 20010714
  54. PERENTEROL [Suspect]
     Active Substance: SACCHAROMYCES CEREVISIAE
     Indication: DIARRHOEA
     Dosage: 300 MG, (100 MG TO 300MG)
     Route: 048
     Dates: start: 20010711, end: 20010714
  55. YEAST DRIED [Suspect]
     Active Substance: YEAST
     Indication: DIARRHOEA
     Route: 048
     Dates: start: 20010711, end: 20010714
  56. LEXOTANIL [Concomitant]
     Active Substance: BROMAZEPAM
     Indication: PRODUCT USED FOR UNKNOWN INDICATION
     Route: 065
     Dates: start: 20010713, end: 20010714
  57. KALIUM [Concomitant]
     Active Substance: POTASSIUM CHLORIDE
     Indication: ELECTROLYTE IMBALANCE
     Dosage: DOSE STATED AS 2. NO UNITS PROVIDED
     Route: 065
     Dates: start: 20010703, end: 20010714
  58. POTASSIUM [Concomitant]
     Active Substance: POTASSIUM
     Indication: ELECTROLYTE IMBALANCE
     Route: 065
     Dates: start: 20010703, end: 20010714
  59. CIPROFLOXACIN HYDROCHLORIDE. [Suspect]
     Active Substance: CIPROFLOXACIN HYDROCHLORIDE
     Route: 048
     Dates: start: 20010620, end: 20010628
  60. ASPIRIN 81 [Suspect]
     Active Substance: ASPIRIN
     Indication: CORONARY ARTERY DISEASE
     Route: 048
     Dates: start: 20010616, end: 20010714
  61. ZAROXOLYN [Suspect]
     Active Substance: METOLAZONE
     Indication: HYPERTENSION
     Route: 048
     Dates: start: 20010712, end: 20010713
  62. DECORTIN [Suspect]
     Active Substance: PREDNISONE
     Indication: DYSPNOEA
     Route: 048
     Dates: start: 20010703, end: 20010703
  63. HALDOL [Suspect]
     Active Substance: HALOPERIDOL
     Indication: RESTLESSNESS
     Dosage: ORAL DROPS
     Route: 048
     Dates: start: 20010713, end: 20010714
  64. METFORMIN HYDROCHLORIDE. [Suspect]
     Active Substance: METFORMIN HYDROCHLORIDE
     Indication: DIABETES MELLITUS
     Route: 048
     Dates: start: 20010616, end: 20010714
  65. METFORMIN HYDROCHLORIDE. [Suspect]
     Active Substance: METFORMIN HYDROCHLORIDE
     Route: 048
     Dates: start: 20010616, end: 20010714
  66. BROMAZEPAM [Concomitant]
     Active Substance: BROMAZEPAM
     Indication: RESTLESSNESS
     Route: 065
     Dates: start: 20010713, end: 20010714
  67. DALTEPARIN SODIUM [Concomitant]
     Active Substance: DALTEPARIN SODIUM
     Indication: THROMBOSIS PROPHYLAXIS
     Dosage: 2500 IU, QD
     Route: 065
     Dates: start: 20010703, end: 20010717

REACTIONS (15)
  - Respiratory disorder [Fatal]
  - Toxic epidermal necrolysis [Fatal]
  - Dermatitis exfoliative [Unknown]
  - Blister [Fatal]
  - Nausea [Fatal]
  - Electrolyte imbalance [Fatal]
  - Hyperthyroidism [Fatal]
  - Cholelithiasis [Fatal]
  - Condition aggravated [Fatal]
  - Cholecystitis [Fatal]
  - Diarrhoea [Fatal]
  - Restlessness [Fatal]
  - Restlessness [Fatal]
  - Erythema [Fatal]
  - Multiple organ dysfunction syndrome [Fatal]

NARRATIVE: CASE EVENT DATE: 20010704
